FAERS Safety Report 7313875-3 (Version None)
Quarter: 2011Q1

REPORT INFORMATION
  Report Type: 
  Country: None (occurrence: None)
  Receive Date: 20110217
  Receipt Date: 20110217
  Transmission Date: 20110831
  Serious: Yes (Disabling, Other)
  Sender: FDA-Public Use
  Company Number: None

PATIENT
  Age: 50 Year
  Sex: Male
  Weight: 104.3273 kg

DRUGS (2)
  1. CAPZASIN-HP CAPSAICIN 0.1% CHATTEM [Suspect]
     Indication: BACK PAIN
     Dosage: MAY BE APPLIED 2-3 X DAY
     Dates: start: 20110215, end: 20110215
  2. CAPZASIN-HP CAPSAICIN 0.1% CHATTEM [Suspect]
     Indication: MYALGIA
     Dosage: MAY BE APPLIED 2-3 X DAY
     Dates: start: 20110215, end: 20110215

REACTIONS (3)
  - THERMAL BURN [None]
  - BLISTER [None]
  - ERYTHEMA [None]
